FAERS Safety Report 7814607-2 (Version None)
Quarter: 2011Q4

REPORT INFORMATION
  Report Type: 
  Country: None (occurrence: None)
  Receive Date: 20111013
  Receipt Date: 20111013
  Transmission Date: 20120403
  Serious: No
  Sender: FDA-Public Use
  Company Number: None

PATIENT
  Sex: Female
  Weight: 48.9885 kg

DRUGS (1)
  1. ENOXAPARIN [Suspect]
     Indication: THROMBOSIS
     Dosage: 40 MG DAILY

REACTIONS (7)
  - ASTHENIA [None]
  - MELAENA [None]
  - CONFUSIONAL STATE [None]
  - FATIGUE [None]
  - DIZZINESS [None]
  - HYPOAESTHESIA [None]
  - GAIT DISTURBANCE [None]
